FAERS Safety Report 8074047-0 (Version None)
Quarter: 2011Q4

REPORT INFORMATION
  Report Type: 
  Country: None (occurrence: None)
  Receive Date: 20111221
  Receipt Date: 20110701
  Transmission Date: 20120403
  Serious: Yes (Other)
  Sender: FDA-Public Use
  Company Number: PHHY2009US66707

PATIENT
  Sex: Female
  Weight: 81.6 kg

DRUGS (1)
  1. EXJADE [Suspect]
     Dosage: 125 MG, 500 MG, 2750 MG, QD, ORAL
     Route: 048
     Dates: start: 20081028

REACTIONS (3)
  - DIARRHOEA [None]
  - PLATELET COUNT DECREASED [None]
  - HAEMATOCHEZIA [None]
